FAERS Safety Report 19737773 (Version 2)
Quarter: 2021Q4

REPORT INFORMATION
  Report Type: Spontaneous
  Country: FR (occurrence: FR)
  Receive Date: 20210823
  Receipt Date: 20211011
  Transmission Date: 20220303
  Serious: Yes (Other)
  Sender: FDA-Public Use
  Company Number: FR-TEVA-2021-FR-1874004

PATIENT
  Age: 55 Year
  Sex: Female

DRUGS (4)
  1. NEVIRAPINE [Suspect]
     Active Substance: NEVIRAPINE
     Indication: HIV infection
     Dosage: UNK
     Route: 065
  2. NEVIRAPINE [Suspect]
     Active Substance: NEVIRAPINE
     Dosage: 400 MILLIGRAM, PM (AT NIGHT FOR HUMAN IMMUNODEFICIENCY VIRUS)
     Dates: start: 2018, end: 20210529
  3. LACTASE [Suspect]
     Active Substance: LACTASE
     Indication: Product used for unknown indication
     Dosage: ONE TABLET , FINALLY INCREASE THE DOSAGE OF TWO LACTASE TABLET
     Route: 065
  4. LYRICA [Concomitant]
     Active Substance: PREGABALIN
     Indication: Pain
     Dosage: UNK (50 MG IN THE MORNING AND 75 MG AT NIGHT)
     Dates: start: 2015, end: 202102

REACTIONS (12)
  - Confusional state [Unknown]
  - Loss of consciousness [Recovered/Resolved]
  - Haematochezia [Recovered/Resolved]
  - Dizziness [Recovered/Resolved]
  - Depression [Recovered/Resolved]
  - Suicidal ideation [Recovered/Resolved]
  - Abdominal pain [Recovered/Resolved]
  - Swelling of eyelid [Recovered/Resolved]
  - Swelling [Recovered/Resolved]
  - Swelling face [Recovered/Resolved]
  - Flatulence [Recovered/Resolved]
  - Vomiting [Recovered/Resolved]
